FAERS Safety Report 10580629 (Version 1)
Quarter: 2014Q4

REPORT INFORMATION
  Report Type: Spontaneous
  Country: US (occurrence: US)
  Receive Date: 20141113
  Receipt Date: 20141113
  Transmission Date: 20150529
  Serious: Yes (Death, Hospitalization, Congenital Anomaly, Other)
  Sender: FDA-Public Use
  Company Number: US-RANBAXY-2014US-87818

PATIENT
  Sex: Male
  Weight: .98 kg

DRUGS (2)
  1. ENALAPRIL MALEATE. [Suspect]
     Active Substance: ENALAPRIL MALEATE
     Indication: ESSENTIAL HYPERTENSION
     Dosage: 5 MG, DAILY
     Route: 064
  2. ENALAPRIL MALEATE. [Suspect]
     Active Substance: ENALAPRIL MALEATE
     Indication: BLOOD PRESSURE DIASTOLIC INCREASED
     Dosage: 7.5 MG, DAILY
     Route: 064

REACTIONS (15)
  - Hypotension [Unknown]
  - Angiotensin converting enzyme inhibitor foetopathy [Unknown]
  - Low birth weight baby [Unknown]
  - Intestinal obstruction [Unknown]
  - Renal dysplasia [Unknown]
  - Oligohydramnios [Unknown]
  - Respiratory distress [Unknown]
  - Hypocalvaria [Unknown]
  - Foetal growth restriction [Unknown]
  - Premature baby [Unknown]
  - Anuria [Unknown]
  - Pulmonary hypoplasia [Unknown]
  - Foetal exposure during pregnancy [Unknown]
  - Intestinal perforation [Unknown]
  - Death [Fatal]
